FAERS Safety Report 6044470-4 (Version None)
Quarter: 2009Q1

REPORT INFORMATION
  Report Type: 
  Country: None (occurrence: None)
  Receive Date: 20090120
  Receipt Date: 20090108
  Transmission Date: 20090719
  Serious: Yes (Hospitalization)
  Sender: FDA-Public Use
  Company Number: JP-AVENTIS-200910054JP

PATIENT
  Age: 62 Year
  Sex: Male

DRUGS (2)
  1. ENOXAPARIN SODIUM [Suspect]
     Indication: HIP ARTHROPLASTY
     Route: 058
     Dates: start: 20081222, end: 20081225
  2. ANTIBIOTICS [Suspect]
     Dates: end: 20081224

REACTIONS (2)
  - CHOLESTATIC LIVER INJURY [None]
  - HEPATIC FUNCTION ABNORMAL [None]
